FAERS Safety Report 5122071-X (Version None)
Quarter: 2006Q4

REPORT INFORMATION
  Report Type: 
  Country: None (occurrence: None)
  Receive Date: 20061004
  Receipt Date: 20061004
  Transmission Date: 20070319
  Serious: Yes (Death, Hospitalization)
  Sender: FDA-Public Use
  Company Number: None

PATIENT
  Sex: Female
  Weight: 58.0604 kg

DRUGS (2)
  1. MORPHINE SULFATE [Suspect]
     Indication: DYSPNOEA
     Dosage: 5-10 MG Q2 HR PRN ORAL
     Route: 048
     Dates: start: 20060830
  2. ATIVAN [Suspect]
     Indication: ANXIETY
     Dosage: .5 MG Q4HR PRN ORAL
     Route: 048
     Dates: start: 20060830

REACTIONS (3)
  - COMA [None]
  - DISORIENTATION [None]
  - DYSPNOEA [None]
